FAERS Safety Report 16012818 (Version 1)
Quarter: 2019Q1

REPORT INFORMATION
  Report Type: Spontaneous
  Country: CN (occurrence: CN)
  Receive Date: 20190227
  Receipt Date: 20190227
  Transmission Date: 20190418
  Serious: Yes (Other)
  Sender: FDA-Public Use
  Company Number: CN-BAXTER-2019BAX003952

PATIENT
  Age: 17 Year
  Sex: Female
  Weight: 41 kg

DRUGS (8)
  1. DOXORUBICIN HYDROCHLORIDE. [Concomitant]
     Active Substance: DOXORUBICIN HYDROCHLORIDE
     Indication: PRODUCT USED FOR UNKNOWN INDICATION
     Route: 065
  2. METHOTREXATE. [Concomitant]
     Active Substance: METHOTREXATE
     Indication: PRODUCT USED FOR UNKNOWN INDICATION
     Route: 065
  3. HOLOXAN [Suspect]
     Active Substance: IFOSFAMIDE
     Indication: OSTEOSARCOMA
     Dosage: DOSAGE FORM: INJECTION, IFOSFAMIDE 3.0 G + NS 500 ML
     Route: 041
     Dates: start: 20181029, end: 20181101
  4. HOLOXAN [Suspect]
     Active Substance: IFOSFAMIDE
     Dosage: DOSAGE FORM: INJECTION, IFOSFAMIDE 3.0 G + NS 500 ML, DOSE RE-INTRODUCED
     Route: 041
     Dates: start: 20181114
  5. CISPLATIN. [Concomitant]
     Active Substance: CISPLATIN
     Indication: PRODUCT USED FOR UNKNOWN INDICATION
     Route: 065
  6. HOLOXAN [Suspect]
     Active Substance: IFOSFAMIDE
     Dosage: DOSAGE FORM: INJECTION
     Route: 041
     Dates: start: 20181104, end: 20181104
  7. 0.9% SODIUM CHLORIDE INJECTION [Suspect]
     Active Substance: SODIUM CHLORIDE
     Dosage: IFOSFAMIDE 3.0 G + NS 500 ML, DOSE RE-INTRODUCED
     Route: 041
     Dates: start: 20181114
  8. 0.9% SODIUM CHLORIDE INJECTION [Suspect]
     Active Substance: SODIUM CHLORIDE
     Indication: MEDICATION DILUTION
     Dosage: IFOSFAMIDE 3.0 G + NS 500 ML
     Route: 041
     Dates: start: 20181029, end: 20181101

REACTIONS (1)
  - Bone marrow failure [Recovering/Resolving]

NARRATIVE: CASE EVENT DATE: 20181106
